FAERS Safety Report 21492751 (Version 1)
Quarter: 2022Q4

REPORT INFORMATION
  Report Type: Spontaneous
  Country: CN (occurrence: CN)
  Receive Date: 20221021
  Receipt Date: 20221021
  Transmission Date: 20230113
  Serious: Yes (Other)
  Sender: FDA-Public Use
  Company Number: CN-PFIZER INC-PV202200086260

PATIENT
  Age: 25 Year
  Sex: Female
  Weight: 63 kg

DRUGS (2)
  1. HEMABATE [Suspect]
     Active Substance: CARBOPROST TROMETHAMINE
     Indication: Postpartum haemorrhage
     Dosage: 250 UG, 1X/DAY
     Route: 030
     Dates: start: 20220921, end: 20220921
  2. ERGONOVINE MALEATE [Concomitant]
     Active Substance: ERGONOVINE MALEATE
     Indication: Uterine hypotonus
     Dosage: 0.2 MG, 1X/DAY
     Route: 030
     Dates: start: 20220921, end: 20220921

REACTIONS (1)
  - Oxygen saturation decreased [Recovered/Resolved]

NARRATIVE: CASE EVENT DATE: 20220921
